FAERS Safety Report 12073420 (Version 2)
Quarter: 2016Q2

REPORT INFORMATION
  Report Type: Spontaneous
  Country: DE (occurrence: DE)
  Receive Date: 20160212
  Receipt Date: 20160621
  Transmission Date: 20160815
  Serious: Yes (Hospitalization, Other)
  Sender: FDA-Public Use
  Company Number: DE-BAYER-2016-021361

PATIENT
  Age: 70 Year
  Sex: Male
  Weight: 87 kg

DRUGS (1)
  1. LEVITRA [Suspect]
     Active Substance: VARDENAFIL HYDROCHLORIDE TRIHYDRATE
     Indication: ERECTILE DYSFUNCTION
     Dosage: 1 DF, OW
     Route: 048

REACTIONS (6)
  - VIth nerve paralysis [Recovering/Resolving]
  - Diplopia [Recovering/Resolving]
  - Hypermetropia [None]
  - VIth nerve disorder [None]
  - Astigmatism [None]
  - Vision blurred [Recovering/Resolving]

NARRATIVE: CASE EVENT DATE: 20160104
